FAERS Safety Report 7414360-0 (Version None)
Quarter: 2011Q2

REPORT INFORMATION
  Report Type: 
  Country: None (occurrence: None)
  Receive Date: 20110411
  Receipt Date: 20110411
  Transmission Date: 20111010
  Serious: Yes (Hospitalization)
  Sender: FDA-Public Use
  Company Number: None

PATIENT
  Sex: Male
  Weight: 63 kg

DRUGS (9)
  1. TORISEL [Suspect]
     Indication: PROSTATE CANCER
     Dosage: 25 MG Q WEEK IV
     Route: 042
     Dates: start: 20110201, end: 20110301
  2. NAMENDA [Concomitant]
  3. COLACE [Concomitant]
  4. KLOR-CON [Concomitant]
  5. SIMVASTATIN [Concomitant]
  6. TRAZODINE [Concomitant]
  7. LEVAPRO [Concomitant]
  8. FAMOTIDINE [Concomitant]
  9. ARICEPT [Concomitant]

REACTIONS (1)
  - PNEUMONIA [None]
